FAERS Safety Report 18670165 (Version 5)
Quarter: 2021Q4

REPORT INFORMATION
  Report Type: Spontaneous
  Country: US (occurrence: US)
  Receive Date: 20201228
  Receipt Date: 20211228
  Transmission Date: 20220303
  Serious: Yes (Other)
  Sender: FDA-Public Use
  Company Number: US-PFIZER INC-2020507126

PATIENT
  Age: 83 Year
  Sex: Male
  Weight: 70.757 kg

DRUGS (2)
  1. VYNDAMAX [Suspect]
     Active Substance: TAFAMIDIS
     Indication: Amyloidosis
     Dosage: UNK, 1X/DAY
     Route: 048
     Dates: start: 202010, end: 202010
  2. VYNDAMAX [Suspect]
     Active Substance: TAFAMIDIS
     Indication: Amyloidosis senile
     Dosage: 61 MG

REACTIONS (9)
  - Fall [Recovered/Resolved with Sequelae]
  - Wrist fracture [Recovering/Resolving]
  - Ligament sprain [Recovering/Resolving]
  - Arthralgia [Recovering/Resolving]
  - Limb injury [Recovering/Resolving]
  - Disease recurrence [Recovering/Resolving]
  - Skin laceration [Recovering/Resolving]
  - Body height decreased [Unknown]
  - Off label use [Unknown]

NARRATIVE: CASE EVENT DATE: 20201001
